FAERS Safety Report 19283521 (Version 1)
Quarter: 2021Q2

REPORT INFORMATION
  Report Type: Spontaneous
  Country: US (occurrence: US)
  Receive Date: 20210521
  Receipt Date: 20210521
  Transmission Date: 20210717
  Serious: No
  Sender: FDA-Public Use
  Company Number: None

PATIENT
  Age: 77 Year
  Sex: Female
  Weight: 69.2 kg

DRUGS (2)
  1. CYTARABINE. [Suspect]
     Active Substance: CYTARABINE
     Dates: end: 20210505
  2. DAUNORUBICIN [Suspect]
     Active Substance: DAUNORUBICIN
     Dates: end: 20210501

REACTIONS (7)
  - Orthopnoea [None]
  - Cardiomyopathy [None]
  - Dyspnoea [None]
  - Ventricular hypokinesia [None]
  - Cardiac failure [None]
  - Ejection fraction decreased [None]
  - Oedema peripheral [None]

NARRATIVE: CASE EVENT DATE: 20210514
